FAERS Safety Report 23107746 (Version 1)
Quarter: 2023Q4

REPORT INFORMATION
  Report Type: Spontaneous
  Country: US (occurrence: US)
  Receive Date: 20231026
  Receipt Date: 20231026
  Transmission Date: 20240109
  Serious: Yes (Other)
  Sender: FDA-Public Use
  Company Number: US-SA-SAC20231024000339

PATIENT
  Age: 89 Year
  Sex: Female

DRUGS (9)
  1. DUPIXENT [Suspect]
     Active Substance: DUPILUMAB
     Indication: Dermatitis atopic
     Dosage: 300 MG QOW
     Route: 058
     Dates: start: 20191108
  2. CALCIUM [Concomitant]
     Active Substance: CALCIUM
  3. HYDROCODONE [Concomitant]
     Active Substance: HYDROCODONE
  4. HYDROCHLOROTHIAZIDE [Concomitant]
     Active Substance: HYDROCHLOROTHIAZIDE
  5. PROLIA [Concomitant]
     Active Substance: DENOSUMAB
  6. PREDNISOLONE [Concomitant]
     Active Substance: PREDNISOLONE
  7. FAMOTIDINE [Concomitant]
     Active Substance: FAMOTIDINE
  8. CLOBETASOL [Concomitant]
     Active Substance: CLOBETASOL
  9. AZITHROMYCIN [Concomitant]
     Active Substance: AZITHROMYCIN

REACTIONS (4)
  - Craniofacial fracture [Unknown]
  - Vitreous detachment [Unknown]
  - Fall [Unknown]
  - Eye injury [Unknown]

NARRATIVE: CASE EVENT DATE: 20230101
